FAERS Safety Report 7377237-5 (Version None)
Quarter: 2011Q1

REPORT INFORMATION
  Report Type: 
  Country: None (occurrence: None)
  Receive Date: 20110328
  Receipt Date: 20110316
  Transmission Date: 20110831
  Serious: Yes (Other)
  Sender: FDA-Public Use
  Company Number: PL-TEVA-272491ISR

PATIENT
  Sex: Male

DRUGS (9)
  1. DISOPHROL RETARD (PSEUDOEPHEDRINE + DEXBROMPHENIRAMINE) [Concomitant]
     Indication: INFECTION
     Route: 048
     Dates: start: 20110127, end: 20110202
  2. DISOPHROL RETARD (PSEUDOEPHEDRINE + DEXBROMPHENIRAMINE) [Concomitant]
     Indication: RHINITIS
  3. IBUPROFEN [Concomitant]
     Indication: PYREXIA
  4. CEFACLOR [Suspect]
     Indication: PYREXIA
  5. IBUPROFEN [Concomitant]
     Indication: INFECTION
     Route: 048
     Dates: start: 20110127, end: 20110202
  6. CEFACLOR [Suspect]
     Indication: RHINITIS
  7. DISOPHROL RETARD (PSEUDOEPHEDRINE + DEXBROMPHENIRAMINE) [Concomitant]
     Indication: PYREXIA
  8. CEFACLOR [Suspect]
     Indication: INFECTION
     Route: 048
     Dates: start: 20110127, end: 20110202
  9. IBUPROFEN [Concomitant]
     Indication: RHINITIS

REACTIONS (4)
  - DELIRIUM [None]
  - DISORIENTATION [None]
  - DIZZINESS [None]
  - VERTIGO [None]
